FAERS Safety Report 11558908 (Version 1)
Quarter: 2015Q3

REPORT INFORMATION
  Report Type: Spontaneous
  Country: US (occurrence: US)
  Receive Date: 20150928
  Receipt Date: 20150928
  Transmission Date: 20151125
  Serious: Yes (Other)
  Sender: FDA-Public Use
  Company Number: US-SA-2015SA142054

PATIENT
  Age: 64 Year
  Sex: Female

DRUGS (4)
  1. ARAVA [Suspect]
     Active Substance: LEFLUNOMIDE
     Indication: RHEUMATOID ARTHRITIS
     Route: 065
     Dates: start: 201509
  2. ARAVA [Suspect]
     Active Substance: LEFLUNOMIDE
     Indication: RHEUMATOID ARTHRITIS
     Route: 065
     Dates: start: 20150806
  3. ARAVA [Suspect]
     Active Substance: LEFLUNOMIDE
     Indication: SJOGREN^S SYNDROME
     Route: 065
     Dates: start: 20150806
  4. ARAVA [Suspect]
     Active Substance: LEFLUNOMIDE
     Indication: SJOGREN^S SYNDROME
     Route: 065
     Dates: start: 201509

REACTIONS (5)
  - Heart rate increased [Unknown]
  - Hypertension [Not Recovered/Not Resolved]
  - Sjogren^s syndrome [Not Recovered/Not Resolved]
  - Unevaluable event [Unknown]
  - Drug ineffective [Unknown]

NARRATIVE: CASE EVENT DATE: 201509
